FAERS Safety Report 25603300 (Version 4)
Quarter: 2025Q3

REPORT INFORMATION
  Report Type: Spontaneous
  Country: US (occurrence: US)
  Receive Date: 20250724
  Receipt Date: 20250822
  Transmission Date: 20251021
  Serious: No
  Sender: SANOFI AVENTIS
  Company Number: US-SANOFI-02598899

PATIENT
  Age: 62 Year
  Sex: Male

DRUGS (2)
  1. DUPIXENT [Suspect]
     Active Substance: DUPILUMAB
     Indication: Bronchopulmonary aspergillosis allergic
     Dosage: 200 MG, QOW
     Route: 058
     Dates: start: 2025
  2. IXEKIZUMAB [Suspect]
     Active Substance: IXEKIZUMAB
     Dates: start: 20250806

REACTIONS (3)
  - Headache [Unknown]
  - Off label use [Unknown]
  - Wrong product administered [Unknown]

NARRATIVE: CASE EVENT DATE: 20250101
